FAERS Safety Report 17912625 (Version 1)
Quarter: 2020Q2

REPORT INFORMATION
  Report Type: Report from Study
  Country: US (occurrence: US)
  Receive Date: 20200618
  Receipt Date: 20200618
  Transmission Date: 20200714
  Serious: Yes (Other)
  Sender: FDA-Public Use
  Company Number: US-UCBSA-2020024180

PATIENT
  Age: 65 Year
  Sex: Female

DRUGS (1)
  1. CERTOLIZUMAB PEGOL [Suspect]
     Active Substance: CERTOLIZUMAB PEGOL
     Indication: PSORIASIS
     Dosage: UNK

REACTIONS (3)
  - Malaise [Not Recovered/Not Resolved]
  - Injection site bruising [Not Recovered/Not Resolved]
  - Suspected COVID-19 [Not Recovered/Not Resolved]

NARRATIVE: CASE EVENT DATE: 20200510
